FAERS Safety Report 10233267 (Version 1)
Quarter: 2014Q2

REPORT INFORMATION
  Report Type: Spontaneous
  Country: US (occurrence: US)
  Receive Date: 20140612
  Receipt Date: 20140612
  Transmission Date: 20141212
  Serious: No
  Sender: FDA-Public Use
  Company Number: US-PFIZER INC-2014159613

PATIENT
  Age: 52 Year
  Sex: Male

DRUGS (4)
  1. PRISTIQ [Suspect]
     Dosage: 50 MG, UNK
  2. PRISTIQ [Suspect]
     Dosage: 100 MG, UNK
  3. PRISTIQ [Suspect]
     Dosage: 200 MG, UNK
  4. PRISTIQ [Suspect]
     Dosage: 50 MG, UNK

REACTIONS (3)
  - Nausea [Unknown]
  - Dizziness [Unknown]
  - Dysstasia [Unknown]
